FAERS Safety Report 5102222-3 (Version None)
Quarter: 2006Q3

REPORT INFORMATION
  Report Type: 
  Country: None (occurrence: None)
  Receive Date: 20060912
  Receipt Date: 20060810
  Transmission Date: 20061208
  Serious: Yes (Hospitalization, Other)
  Sender: FDA-Public Use
  Company Number: US-AMGEN-STX189528

PATIENT
  Sex: Female
  Weight: 73.5 kg

DRUGS (8)
  1. ENBREL [Suspect]
     Indication: RHEUMATOID ARTHRITIS
     Route: 058
     Dates: start: 20031121, end: 20060501
  2. METHOTREXATE [Concomitant]
     Dates: start: 20020611, end: 20060501
  3. MOTRIN [Concomitant]
     Dates: start: 20020101
  4. LYRICA [Concomitant]
  5. FOLIC ACID [Concomitant]
  6. ACTONEL [Concomitant]
     Dates: start: 20060102
  7. ESTRADIOL INJ [Concomitant]
     Dates: start: 20060101
  8. VIACTIVE [Concomitant]
     Dates: start: 20060101

REACTIONS (6)
  - BLOOD PRESSURE INCREASED [None]
  - CAROTID ARTERY DISEASE [None]
  - CEREBRAL INFARCTION [None]
  - HEMIPARESIS [None]
  - HYPERCHOLESTEROLAEMIA [None]
  - ISCHAEMIC STROKE [None]
